FAERS Safety Report 15722903 (Version 5)
Quarter: 2019Q1

REPORT INFORMATION
  Report Type: Spontaneous
  Country: CA (occurrence: CA)
  Receive Date: 20181214
  Receipt Date: 20190320
  Transmission Date: 20190417
  Serious: Yes (Other)
  Sender: FDA-Public Use
  Company Number: CA-CONCORDIA PHARMACEUTICALS INC.-GSH201812-004086

PATIENT
  Age: 76 Year
  Sex: Female

DRUGS (48)
  1. ACTEMRA [Suspect]
     Active Substance: TOCILIZUMAB
     Indication: RHEUMATOID ARTHRITIS
     Route: 042
     Dates: start: 20150203, end: 20150203
  2. METHOTREXATE SODIUM. [Suspect]
     Active Substance: METHOTREXATE SODIUM
     Indication: RHEUMATOID ARTHRITIS
     Route: 065
  3. OMNARIS [Concomitant]
     Active Substance: CICLESONIDE
     Indication: PAIN
  4. DESOXIMETASONE. [Concomitant]
     Active Substance: DESOXIMETASONE
  5. OXYNEO [Concomitant]
     Active Substance: OXYCODONE
  6. ANAKINRA [Concomitant]
     Active Substance: ANAKINRA
  7. XELJANZ [Suspect]
     Active Substance: TOFACITINIB CITRATE
     Indication: PRODUCT USED FOR UNKNOWN INDICATION
     Dosage: UNKNOWN
     Route: 065
  8. SODIUM AUROTHIOMALATE [Suspect]
     Active Substance: GOLD SODIUM THIOMALATE
     Indication: PRODUCT USED FOR UNKNOWN INDICATION
     Dosage: UNKNOWN
     Route: 030
  9. KINERET [Concomitant]
     Active Substance: ANAKINRA
     Indication: PAIN
  10. DARIFENACIN HYDROBROMIDE. [Concomitant]
     Active Substance: DARIFENACIN HYDROBROMIDE
  11. DESOXIMETASONE. [Concomitant]
     Active Substance: DESOXIMETASONE
  12. MORPHINE SULFATE. [Concomitant]
     Active Substance: MORPHINE SULFATE
  13. DIPHENHYDRAMINE. [Concomitant]
     Active Substance: DIPHENHYDRAMINE
  14. ARAVA [Suspect]
     Active Substance: LEFLUNOMIDE
     Indication: RHEUMATOID ARTHRITIS
     Route: 065
     Dates: start: 200408
  15. REMICADE [Suspect]
     Active Substance: INFLIXIMAB
     Indication: RHEUMATOID ARTHRITIS
     Route: 042
     Dates: start: 200407, end: 2005
  16. GOLD [Suspect]
     Active Substance: GOLD
     Indication: RHEUMATOID ARTHRITIS
     Dosage: UNKNOWN
     Route: 065
  17. BENADRYL [Concomitant]
     Active Substance: DIPHENHYDRAMINE HYDROCHLORIDE
     Indication: PAIN
  18. LASIX [Concomitant]
     Active Substance: FUROSEMIDE
     Indication: PAIN
  19. DILAUDID [Concomitant]
     Active Substance: HYDROMORPHONE HYDROCHLORIDE
     Indication: PAIN
  20. KENALOG [Concomitant]
     Active Substance: TRIAMCINOLONE ACETONIDE
  21. ORENCIA [Suspect]
     Active Substance: ABATACEPT
     Indication: RHEUMATOID ARTHRITIS
     Route: 042
     Dates: start: 200611, end: 200711
  22. SYNTHROID [Concomitant]
     Active Substance: LEVOTHYROXINE SODIUM
     Indication: PAIN
  23. PANTOPRAZOLE [Concomitant]
     Active Substance: PANTOPRAZOLE
     Indication: PAIN
  24. RITUXAN [Concomitant]
     Active Substance: RITUXIMAB
     Indication: PRODUCT USED FOR UNKNOWN INDICATION
  25. ACETAMINOPHEN. [Concomitant]
     Active Substance: ACETAMINOPHEN
  26. RESTASIS [Concomitant]
     Active Substance: CYCLOSPORINE
  27. PLAQUENIL [Suspect]
     Active Substance: HYDROXYCHLOROQUINE SULFATE
     Indication: PRODUCT USED FOR UNKNOWN INDICATION
     Route: 065
  28. HUMIRA [Suspect]
     Active Substance: ADALIMUMAB
     Indication: RHEUMATOID ARTHRITIS
     Route: 058
     Dates: start: 2005, end: 2006
  29. ENBREL [Suspect]
     Active Substance: ETANERCEPT
     Indication: RHEUMATOID ARTHRITIS
     Route: 065
     Dates: start: 200205, end: 200409
  30. DARIFENACIN. [Concomitant]
     Active Substance: DARIFENACIN
     Indication: PAIN
  31. LOPERAMIDE HYDROCHLORIDE. [Concomitant]
     Active Substance: LOPERAMIDE HYDROCHLORIDE
     Indication: PAIN
  32. ORPHENADRINE CITRATE. [Concomitant]
     Active Substance: ORPHENADRINE CITRATE
     Indication: PAIN
  33. VAGIFEM [Concomitant]
     Active Substance: ESTRADIOL
     Indication: PAIN
  34. CORTISONE [Concomitant]
     Active Substance: CORTISONE\HYDROCORTISONE
     Indication: PAIN
     Dosage: (INTERMITTENT INTRA-AURICULAR AND INTRAMUSCULAR TO KEEP HER COMFORTABLE)
  35. CODEINE [Concomitant]
     Active Substance: CODEINE
  36. PANTOPRAZOLE SODIUM ANHYDROUS [Concomitant]
     Active Substance: PANTOPRAZOLE SODIUM ANHYDROUS
  37. HYDROXYCHLOROQUINE [Suspect]
     Active Substance: HYDROXYCHLOROQUINE
     Indication: RHEUMATOID ARTHRITIS
     Route: 065
  38. ABATACEPT [Suspect]
     Active Substance: ABATACEPT
     Route: 065
     Dates: start: 200611, end: 2007
  39. TOCILIZUMAB. [Suspect]
     Active Substance: TOCILIZUMAB
     Indication: RHEUMATOID ARTHRITIS
     Dosage: UNKNOWN
     Route: 042
  40. ATIVAN [Concomitant]
     Active Substance: LORAZEPAM
     Indication: PAIN
  41. HYDROMORPHONE [Concomitant]
     Active Substance: HYDROMORPHONE
  42. KADIAN [Concomitant]
     Active Substance: MORPHINE SULFATE
  43. URISPAS [Concomitant]
     Active Substance: FLAVOXATE HYDROCHLORIDE
  44. HYDROXYCHLOROQUINE [Suspect]
     Active Substance: HYDROXYCHLOROQUINE
     Route: 065
  45. METHOTREXATE. [Suspect]
     Active Substance: METHOTREXATE
     Indication: PRODUCT USED FOR UNKNOWN INDICATION
     Route: 065
     Dates: start: 1995, end: 200411
  46. RITUXAN [Suspect]
     Active Substance: RITUXIMAB
     Indication: PRODUCT USED FOR UNKNOWN INDICATION
     Route: 042
     Dates: start: 2007, end: 201010
  47. TRIMETHOPRIM. [Concomitant]
     Active Substance: TRIMETHOPRIM
  48. DYCLONE [Concomitant]
     Active Substance: DYCLONINE HYDROCHLORIDE

REACTIONS (24)
  - Peripheral swelling [Not Recovered/Not Resolved]
  - Herpes zoster [Unknown]
  - Fibromyalgia [Unknown]
  - Stomatitis [Unknown]
  - Joint swelling [Unknown]
  - Liver function test abnormal [Unknown]
  - C-reactive protein abnormal [Unknown]
  - Anaemia [Unknown]
  - Leukopenia [Unknown]
  - Oral pain [Unknown]
  - Arthralgia [Unknown]
  - Hypersensitivity [Unknown]
  - Drug intolerance [Unknown]
  - Arthritis [Unknown]
  - Swelling [Unknown]
  - Drug effect incomplete [Unknown]
  - Blood cholesterol increased [Unknown]
  - Herpes zoster [Not Recovered/Not Resolved]
  - Drug ineffective [Unknown]
  - Pneumonia viral [Not Recovered/Not Resolved]
  - Rheumatoid arthritis [Unknown]
  - Tenderness [Unknown]
  - Synovitis [Unknown]
  - Infection [Unknown]

NARRATIVE: CASE EVENT DATE: 2015
